FAERS Safety Report 16458140 (Version 1)
Quarter: 2019Q2

REPORT INFORMATION
  Report Type: Spontaneous
  Country: US (occurrence: US)
  Receive Date: 20190620
  Receipt Date: 20190620
  Transmission Date: 20190711
  Serious: No
  Sender: FDA-Public Use
  Company Number: US-MYLANLABS-2019M1053295

PATIENT
  Sex: Female
  Weight: 102 kg

DRUGS (14)
  1. LIDOCAINE PATCH [Suspect]
     Active Substance: LIDOCAINE
     Indication: INTERVERTEBRAL DISC DEGENERATION
     Dosage: 5 PERCENT
     Route: 003
  2. LOSARTAN. [Concomitant]
     Active Substance: LOSARTAN
     Indication: HYPERTENSION
     Dosage: 10MG  DAILY
  3. BUPROPION HYDROCHLORIDE XL [Concomitant]
     Active Substance: BUPROPION HYDROCHLORIDE
     Indication: DEPRESSION
     Dosage: 300MG,  ONCE MORNING
  4. OMEPRAZOLE. [Concomitant]
     Active Substance: OMEPRAZOLE
     Indication: GASTROOESOPHAGEAL REFLUX DISEASE
     Dosage: 20MG  TWO DAILY (AM + PM)
  5. TRANEXAMIC ACID. [Concomitant]
     Active Substance: TRANEXAMIC ACID
     Dosage: 650MG AS NEEDED
  6. LIDOCAINE PATCH [Suspect]
     Active Substance: LIDOCAINE
     Indication: PAIN
     Dosage: 5 PERCENT
     Route: 003
  7. CLONAZEPAM. [Concomitant]
     Active Substance: CLONAZEPAM
     Indication: SLEEP DISORDER
     Dosage: 0.5MG ONCE NIGHTLY
  8. OXYCODONE [Concomitant]
     Active Substance: OXYCODONE
     Dosage: 10/325  UP TO 3 A DAY AS NEEDED
  9. MIRAPEX [Concomitant]
     Active Substance: PRAMIPEXOLE DIHYDROCHLORIDE
     Indication: RESTLESS LEGS SYNDROME
     Dosage: 4.5MG  UP TO THREE DAILY AS NEEDED
  10. STIMATE                            /00361902/ [Concomitant]
     Dosage: ONE SPRAY EACH NOSTRIL
     Route: 045
  11. BACLOFEN. [Concomitant]
     Active Substance: BACLOFEN
     Indication: DEPRESSION
     Dosage: 10 MG ONE OR TWO DAILY
  12. FENTANYL. [Concomitant]
     Active Substance: FENTANYL
     Dosage: 50MCG CHANGE 72HR
  13. MULTIVITAMIN                       /00097801/ [Concomitant]
     Active Substance: VITAMINS
     Dosage: UNK
  14. VITAMIN D3 [Concomitant]
     Active Substance: CHOLECALCIFEROL
     Dosage: UNK

REACTIONS (3)
  - Off label use [Unknown]
  - Product adhesion issue [Not Recovered/Not Resolved]
  - Product quality issue [Not Recovered/Not Resolved]
